FAERS Safety Report 23914410 (Version 1)
Quarter: 2024Q2

REPORT INFORMATION
  Report Type: Spontaneous
  Country: US (occurrence: None)
  Receive Date: 20240527
  Receipt Date: 20240527
  Transmission Date: 20240716
  Serious: Yes (Hospitalization, Disabling)
  Sender: FDA-Public Use
  Company Number: None

PATIENT
  Age: 23 Year
  Sex: Female
  Weight: 54 kg

DRUGS (1)
  1. AMITRIPTYLINE [Suspect]
     Active Substance: AMITRIPTYLINE
     Indication: Headache
     Dosage: FREQUENCY : AT BEDTIME;?
     Route: 048
     Dates: start: 20240508, end: 20240509

REACTIONS (12)
  - Palpitations [None]
  - Impaired driving ability [None]
  - Impaired work ability [None]
  - Ventricular extrasystoles [None]
  - Syncope [None]
  - Dizziness [None]
  - Pain [None]
  - Anhedonia [None]
  - Quality of life decreased [None]
  - Cardiomyopathy [None]
  - Near death experience [None]
  - Exercise tolerance decreased [None]

NARRATIVE: CASE EVENT DATE: 20240508
